FAERS Safety Report 4516857-X (Version None)
Quarter: 2004Q4

REPORT INFORMATION
  Report Type: 
  Country: None (occurrence: None)
  Receive Date: 20041202
  Receipt Date: 20041122
  Transmission Date: 20050328
  Serious: Yes (Other)
  Sender: FDA-Public Use
  Company Number: AU-GLAXOSMITHKLINE-B0358654A

PATIENT
  Age: 41 Year
  Sex: Female

DRUGS (2)
  1. ZYBAN [Suspect]
     Dates: start: 20041021
  2. NO CONCURRENT MEDICATION [Concomitant]

REACTIONS (4)
  - BALANCE DISORDER [None]
  - DIZZINESS [None]
  - DIZZINESS POSTURAL [None]
  - VISUAL ACUITY REDUCED [None]
